FAERS Safety Report 5835713-8 (Version None)
Quarter: 2008Q3

REPORT INFORMATION
  Report Type: 
  Country: None (occurrence: None)
  Receive Date: 20080725
  Receipt Date: 20071031
  Transmission Date: 20090109
  Serious: Yes (Hospitalization, Other)
  Sender: FDA-Public Use
  Company Number: 42338

PATIENT
  Age: 52 Year
  Sex: Male

DRUGS (7)
  1. ETOPOSIDE [Suspect]
     Indication: SMALL CELL LUNG CANCER STAGE UNSPECIFIED
     Dosage: 290MG IV X 1 HR (PATIENT RECEIVED MINUTES WO
     Dates: start: 20071029
  2. TENOFOVIR [Concomitant]
  3. EFAVIRENZ [Concomitant]
  4. ADVAIR DISKUS 100/50 [Concomitant]
  5. IV NS WITH VIT K + AND NG+FOR CISPLATIN PREHYDRATION [Concomitant]
  6. EMTRACITABINE [Concomitant]
  7. CISPLATIN [Concomitant]

REACTIONS (1)
  - ANAPHYLACTIC REACTION [None]
